FAERS Safety Report 21536591 (Version 4)
Quarter: 2025Q1

REPORT INFORMATION
  Report Type: Spontaneous
  Country: US (occurrence: US)
  Receive Date: 20221101
  Receipt Date: 20250213
  Transmission Date: 20250409
  Serious: No
  Sender: PFIZER
  Company Number: US-PFIZER INC-PV202200092428

PATIENT
  Age: 73 Year
  Sex: Female
  Weight: 61.678 kg

DRUGS (4)
  1. IBRANCE [Suspect]
     Active Substance: PALBOCICLIB
     Indication: Neoplasm malignant
     Route: 048
     Dates: start: 202106, end: 202209
  2. IBRANCE [Suspect]
     Active Substance: PALBOCICLIB
     Route: 048
     Dates: start: 2022
  3. IBRANCE [Suspect]
     Active Substance: PALBOCICLIB
     Route: 048
  4. LETROZOLE [Concomitant]
     Active Substance: LETROZOLE
     Dates: start: 202202

REACTIONS (1)
  - Influenza [Recovered/Resolved]

NARRATIVE: CASE EVENT DATE: 20220901
